FAERS Safety Report 6991966-4 (Version None)
Quarter: 2010Q3

REPORT INFORMATION
  Report Type: 
  Country: None (occurrence: None)
  Receive Date: 20100917
  Receipt Date: 20100909
  Transmission Date: 20110219
  Serious: No
  Sender: FDA-Public Use
  Company Number: US-US-EMD SERONO, INC.-232178J10USA

PATIENT
  Sex: Female
  Weight: 47 kg

DRUGS (8)
  1. REBIF [Suspect]
     Indication: MULTIPLE SCLEROSIS
     Route: 058
     Dates: start: 20070901, end: 20090101
  2. REBIF [Suspect]
     Route: 058
     Dates: start: 20090101, end: 20100301
  3. REBIF [Suspect]
     Route: 058
     Dates: start: 20100301
  4. NAPROXEN [Concomitant]
     Indication: PREMEDICATION
  5. ZOCOR [Concomitant]
     Indication: PROPHYLAXIS
  6. HORMONE PATCH [Concomitant]
     Route: 062
  7. EVISTA [Concomitant]
     Indication: HORMONE REPLACEMENT THERAPY
     Dates: start: 20100101
  8. FOSAMAX [Concomitant]
     Indication: OSTEOPOROSIS

REACTIONS (5)
  - ENDOMETRIAL HYPERTROPHY [None]
  - HERPES ZOSTER [None]
  - MULTIPLE SCLEROSIS [None]
  - MYELOFIBROSIS [None]
  - UTERINE POLYP [None]
